FAERS Safety Report 6372116-4 (Version None)
Quarter: 2009Q3

REPORT INFORMATION
  Report Type: 
  Country: None (occurrence: None)
  Receive Date: 20090917
  Receipt Date: 20090914
  Transmission Date: 20100115
  Serious: Yes (Death)
  Sender: FDA-Public Use
  Company Number: 2009008737

PATIENT
  Age: 2 Year
  Sex: Female

DRUGS (4)
  1. TRISENOX [Suspect]
     Indication: ACUTE PROMYELOCYTIC LEUKAEMIA
     Dosage: INTRAVENOUS DRIP
     Route: 041
  2. ANTHRACYCLINE (ANTHRACYCLINES) [Suspect]
     Indication: ACUTE PROMYELOCYTIC LEUKAEMIA
     Dosage: INTRAVENOUS
     Route: 042
  3. CYTARABINE [Concomitant]
  4. DAUNORUBICINE (DAUNORUBICIN) [Concomitant]

REACTIONS (7)
  - CARDIAC ARREST [None]
  - CARDIAC FAILURE [None]
  - HEPATIC PAIN [None]
  - LUNG DISORDER [None]
  - ORTHOPNOEA [None]
  - PYREXIA [None]
  - URINE OUTPUT DECREASED [None]
